FAERS Safety Report 9769470 (Version 2)
Quarter: 2014Q1

REPORT INFORMATION
  Report Type: Spontaneous
  Country: JP (occurrence: JP)
  Receive Date: 20131218
  Receipt Date: 20140306
  Transmission Date: 20141002
  Serious: Yes (Other)
  Sender: FDA-Public Use
  Company Number: JP-SA-2013SA128567

PATIENT
  Age: 65 Year
  Sex: Female

DRUGS (4)
  1. ALLEGRA [Suspect]
     Indication: SEASONAL ALLERGY
     Route: 048
     Dates: start: 20120404, end: 201205
  2. EPADEL [Suspect]
     Indication: HYPERLIPIDAEMIA
     Route: 048
     Dates: start: 20120404
  3. LIORESAL [Suspect]
     Indication: TENSION HEADACHE
     Route: 048
     Dates: start: 20120404
  4. LIORESAL [Suspect]
     Indication: MUSCULOSKELETAL STIFFNESS
     Route: 048
     Dates: start: 20120404

REACTIONS (3)
  - Drug eruption [Unknown]
  - Headache [Unknown]
  - Urticaria [Unknown]
